FAERS Safety Report 4610124-1 (Version None)
Quarter: 2005Q2

REPORT INFORMATION
  Report Type: 
  Country: None (occurrence: None)
  Receive Date: 20050301
  Receipt Date: 20041112
  Transmission Date: 20051028
  Serious: No
  Sender: FDA-Public Use
  Company Number: WAES 0411USA02790

PATIENT

DRUGS (2)
  1. ZETIA [Suspect]
     Dosage: 10 MG/DAILY/PO
     Route: 048
  2. CRESTOR [Concomitant]

REACTIONS (2)
  - ABDOMINAL DISTENSION [None]
  - PAIN [None]
